FAERS Safety Report 19922430 (Version 1)
Quarter: 2021Q4

REPORT INFORMATION
  Report Type: Spontaneous
  Country: US (occurrence: US)
  Receive Date: 20211005
  Receipt Date: 20211005
  Transmission Date: 20220303
  Serious: Yes (Life-Threatening, Hospitalization, Disabling, Other)
  Sender: FDA-Public Use
  Company Number: None

PATIENT
  Age: 55 Year
  Sex: Female
  Weight: 65.25 kg

DRUGS (2)
  1. HYDROXYCHLOROQUINE [Suspect]
     Active Substance: HYDROXYCHLOROQUINE
     Indication: Autoimmune disorder
     Dosage: ?          QUANTITY:180 TABLET(S);
     Route: 048
  2. ASPIRIN [Concomitant]
     Active Substance: ASPIRIN

REACTIONS (8)
  - Haematemesis [None]
  - Weight decreased [None]
  - Haemorrhage [None]
  - Mental disorder [None]
  - Asthenia [None]
  - Faeces discoloured [None]
  - Gait disturbance [None]
  - Quality of life decreased [None]

NARRATIVE: CASE EVENT DATE: 20010420
